FAERS Safety Report 9543456 (Version 1)
Quarter: 2013Q2

REPORT INFORMATION
  Report Type: Spontaneous
  Country: US (occurrence: None)
  Receive Date: 20130524
  Receipt Date: 20130524
  Transmission Date: 20140414
  Serious: No
  Sender: FDA-Public Use
  Company Number: PHEH2013US004078

PATIENT
  Age: 29 Year
  Sex: Female
  Weight: 61.2 kg

DRUGS (1)
  1. GILENYA [Suspect]
     Indication: MULTIPLE SCLEROSIS
     Route: 048
     Dates: start: 20130215

REACTIONS (8)
  - Hunger [None]
  - Palpitations [None]
  - Anxiety [None]
  - Muscular weakness [None]
  - Nausea [None]
  - Vomiting [None]
  - Paraesthesia [None]
  - Headache [None]
